FAERS Safety Report 15387728 (Version 2)
Quarter: 2020Q3

REPORT INFORMATION
  Report Type: Spontaneous
  Country: US (occurrence: US)
  Receive Date: 20180914
  Receipt Date: 20200807
  Transmission Date: 20201102
  Serious: Yes (Other)
  Sender: FDA-Public Use
  Company Number: US-TAKEDA-2018MPI011381

PATIENT
  Sex: Male

DRUGS (12)
  1. POMALYST [Suspect]
     Active Substance: POMALIDOMIDE
     Indication: PLASMA CELL MYELOMA
     Dosage: UNK
     Route: 065
     Dates: start: 20200805
  2. NINLARO [Suspect]
     Active Substance: IXAZOMIB CITRATE
     Indication: PLASMA CELL MYELOMA
     Dosage: UNK
     Route: 048
  3. REVLIMID [Suspect]
     Active Substance: LENALIDOMIDE
     Indication: PRODUCT USED FOR UNKNOWN INDICATION
     Dosage: UNK
     Route: 065
  4. OMEPRAZOLE. [Concomitant]
     Active Substance: OMEPRAZOLE
     Dosage: UNK
     Route: 065
  5. LUPRON DEPOT [Concomitant]
     Active Substance: LEUPROLIDE ACETATE
     Dosage: UNK
     Route: 065
  6. ASPIRIN                            /00002701/ [Concomitant]
     Active Substance: ASPIRIN
     Dosage: UNK
     Route: 065
  7. SUCRALFATE. [Concomitant]
     Active Substance: SUCRALFATE
     Dosage: UNK
     Route: 065
  8. XGEVA [Concomitant]
     Active Substance: DENOSUMAB
     Dosage: UNK
     Route: 065
  9. NINLARO [Suspect]
     Active Substance: IXAZOMIB CITRATE
     Dosage: UNK
     Route: 048
     Dates: start: 20200805
  10. LEVOTHYROXINE. [Concomitant]
     Active Substance: LEVOTHYROXINE
     Dosage: UNK
     Route: 065
  11. CALCIUM [Concomitant]
     Active Substance: CALCIUM
     Dosage: UNK
     Route: 065
  12. VITAMIN D                          /00107901/ [Concomitant]
     Active Substance: ERGOCALCIFEROL
     Dosage: UNK
     Route: 065

REACTIONS (2)
  - Off label use [Unknown]
  - Plasma cell myeloma [Not Recovered/Not Resolved]

NARRATIVE: CASE EVENT DATE: 2018
